FAERS Safety Report 12203180 (Version 2)
Quarter: 2016Q4

REPORT INFORMATION
  Report Type: Spontaneous
  Country: US (occurrence: US)
  Receive Date: 20160323
  Receipt Date: 20161208
  Transmission Date: 20170207
  Serious: Yes (Other)
  Sender: FDA-Public Use
  Company Number: US-ENDO PHARMACEUTICALS INC.-2016-002061

PATIENT
  Age: 62 Year
  Sex: Female
  Weight: 56.75 kg

DRUGS (1)
  1. SUMAVEL DOSEPRO [Suspect]
     Active Substance: SUMATRIPTAN SUCCINATE
     Indication: MIGRAINE
     Route: 058
     Dates: start: 2012

REACTIONS (4)
  - Choking [Unknown]
  - Device malfunction [Recovered/Resolved]
  - Accidental exposure to product [Unknown]
  - Cough [Unknown]

NARRATIVE: CASE EVENT DATE: 201603
